FAERS Safety Report 7897260-1 (Version None)
Quarter: 2011Q4

REPORT INFORMATION
  Report Type: 
  Country: None (occurrence: None)
  Receive Date: 20111107
  Receipt Date: 20111004
  Transmission Date: 20120403
  Serious: No
  Sender: FDA-Public Use
  Company Number: US-GLAXOSMITHKLINE-A0947009A

PATIENT
  Age: 11 Year
  Sex: Female

DRUGS (4)
  1. CLINDAMYCIN SOLUTION [Concomitant]
  2. MULTI-VITAMIN [Concomitant]
  3. VELTIN [Suspect]
     Indication: ACNE
     Dosage: 1APP PER DAY
     Route: 061
     Dates: start: 20110625
  4. UNKNOWN MEDICATION [Concomitant]
     Route: 061

REACTIONS (3)
  - ERYTHEMA [None]
  - SKIN EXFOLIATION [None]
  - FACIAL PAIN [None]
